FAERS Safety Report 6139732-6 (Version None)
Quarter: 2009Q2

REPORT INFORMATION
  Report Type: 
  Country: None (occurrence: None)
  Receive Date: 20090401
  Receipt Date: 20090326
  Transmission Date: 20091009
  Serious: Yes (Other)
  Sender: FDA-Public Use
  Company Number: US-AVENTIS-200912470US

PATIENT

DRUGS (9)
  1. LOVENOX [Suspect]
     Indication: THROMBOSIS PROPHYLAXIS
  2. NEFAZODONE HCL [Concomitant]
  3. SEROQUEL [Concomitant]
  4. DIGOXIN [Concomitant]
  5. LASIX [Concomitant]
  6. LORAZEPAM [Concomitant]
  7. ZOCOR [Concomitant]
  8. FOLIC ACID [Concomitant]
  9. COUMADIN [Concomitant]
     Dosage: DOSE: UNK
     Dates: start: 20070401

REACTIONS (2)
  - DYSPNOEA [None]
  - PLEURAL EFFUSION [None]
